FAERS Safety Report 14326905 (Version 3)
Quarter: 2018Q1

REPORT INFORMATION
  Report Type: Report from Study
  Country: DE (occurrence: DE)
  Receive Date: 20171227
  Receipt Date: 20180219
  Transmission Date: 20180509
  Serious: Yes (Hospitalization, Other)
  Sender: FDA-Public Use
  Company Number: DE-UCBSA-2017052009

PATIENT
  Sex: Female
  Weight: 98 kg

DRUGS (10)
  1. CITALOPRAM [Concomitant]
     Active Substance: CITALOPRAM HYDROBROMIDE
     Indication: EPILEPSY
     Dosage: 20 MG, ONCE DAILY (QD)
     Dates: start: 20060301
  2. RISPERIDON [Concomitant]
     Active Substance: RISPERIDONE
     Indication: EPILEPSY
     Dosage: 2 MG, 2X/DAY (BID)
     Dates: start: 20060301
  3. BRIVARACETAM [Suspect]
     Active Substance: BRIVARACETAM
     Dosage: 50 MG QD AND 100 MG QD, 2X/DAY (BID)
     Dates: start: 20160521, end: 20160603
  4. BRIVARACETAM [Suspect]
     Active Substance: BRIVARACETAM
     Dosage: 100 MG, 2X/DAY (BID)
     Dates: start: 20160604
  5. BRIVARACETAM [Suspect]
     Active Substance: BRIVARACETAM
     Dosage: 25 MG, 2X/DAY (BID)
     Dates: start: 20160427, end: 20160503
  6. BRIVARACETAM [Suspect]
     Active Substance: BRIVARACETAM
     Dosage: 50 MG QD, 25 MG QD, 2X/DAY (BID)
     Dates: start: 20160504, end: 20160508
  7. BRIVARACETAM [Suspect]
     Active Substance: BRIVARACETAM
     Dosage: 50 MG, 2X/DAY (BID)
     Dates: start: 20160509, end: 20160520
  8. PHENOBARBITAL. [Concomitant]
     Active Substance: PHENOBARBITAL
     Indication: EPILEPSY
     Dosage: 125 MG, 2X/DAY (BID)
     Dates: start: 20160513
  9. BRIVARACETAM [Suspect]
     Active Substance: BRIVARACETAM
     Indication: EPILEPSY
     Dosage: 25 MG, ONCE DAILY (QD)
     Dates: start: 20160422, end: 20160426
  10. PHENYTOIN. [Concomitant]
     Active Substance: PHENYTOIN
     Indication: EPILEPSY
     Dosage: 400 MG, 3X/DAY (TID)
     Dates: start: 20100908

REACTIONS (1)
  - Seizure [Recovered/Resolved]

NARRATIVE: CASE EVENT DATE: 20160621
